FAERS Safety Report 8997080 (Version 3)
Quarter: 2013Q3

REPORT INFORMATION
  Report Type: Report from Study
  Country: JP (occurrence: JP)
  Receive Date: 20130104
  Receipt Date: 20130821
  Transmission Date: 20140515
  Serious: Yes (Life-Threatening, Hospitalization, Disabling, Other)
  Sender: FDA-Public Use
  Company Number: JP-SHIRE-ALL1-2012-06637

PATIENT
  Age: 14 Year
  Sex: Male
  Weight: 30 kg

DRUGS (3)
  1. IDURSULFASE [Suspect]
     Indication: MUCOPOLYSACCHARIDOSIS II
     Dosage: 12 MG, UNKNOWN
     Route: 041
     Dates: start: 20080215
  2. CETIRIZINE HYDROCHLORIDE [Concomitant]
     Indication: PREMEDICATION
     Dosage: 5 MG, 2X/DAY:BID
     Route: 048
  3. CARBOCISTEINE [Concomitant]
     Indication: PRODUCT USED FOR UNKNOWN INDICATION
     Dosage: 350 MG, 2X/DAY:BID
     Route: 048

REACTIONS (4)
  - Acute respiratory failure [Recovered/Resolved with Sequelae]
  - Tracheal stenosis [Recovered/Resolved with Sequelae]
  - Hyperglycaemia [Recovered/Resolved]
  - Convulsion [Unknown]
